FAERS Safety Report 7731598-3 (Version None)
Quarter: 2011Q3

REPORT INFORMATION
  Report Type: 
  Country: None (occurrence: None)
  Receive Date: 20110906
  Receipt Date: 20110606
  Transmission Date: 20111222
  Serious: No
  Sender: FDA-Public Use
  Company Number: US-AMGEN-USASP2011025816

PATIENT
  Age: 69 Year
  Sex: Female
  Weight: 63.039 kg

DRUGS (1)
  1. PROLIA [Suspect]
     Indication: OSTEOPOROSIS POSTMENOPAUSAL
     Dosage: 60 MG, Q6MO
     Dates: start: 20101215

REACTIONS (5)
  - ARTHRALGIA [None]
  - PAIN IN JAW [None]
  - MYALGIA [None]
  - GAIT DISTURBANCE [None]
  - DYSSTASIA [None]
